FAERS Safety Report 4998973-1 (Version None)
Quarter: 2006Q1

REPORT INFORMATION
  Report Type: 
  Country: None (occurrence: None)
  Receive Date: 20060315
  Receipt Date: 20060131
  Transmission Date: 20060701
  Serious: Yes (Other)
  Sender: FDA-Public Use
  Company Number: 434614

PATIENT
  Age: 42 Year
  Sex: Female

DRUGS (3)
  1. BONIVA [Suspect]
     Indication: OSTEOPOROSIS
     Dosage: ORAL
     Route: 048
     Dates: start: 20060127, end: 20060127
  2. NEXIUM [Concomitant]
  3. CORGARD [Concomitant]

REACTIONS (2)
  - BACK PAIN [None]
  - MYALGIA [None]
